FAERS Safety Report 9464150 (Version 4)
Quarter: 2014Q2

REPORT INFORMATION
  Report Type: Report from Study
  Country: US (occurrence: US)
  Receive Date: 20130819
  Receipt Date: 20140523
  Transmission Date: 20141212
  Serious: Yes (Other)
  Sender: FDA-Public Use
  Company Number: US-SANOFI-AVENTIS-2013SA019260

PATIENT
  Age: 66 Year
  Sex: Female

DRUGS (2)
  1. AUBAGIO [Suspect]
     Indication: MULTIPLE SCLEROSIS
     Route: 048
     Dates: start: 20130128, end: 20130225
  2. AUBAGIO [Suspect]
     Indication: MULTIPLE SCLEROSIS
     Route: 048
     Dates: start: 20130302

REACTIONS (6)
  - Cataract [Unknown]
  - Nausea [Not Recovered/Not Resolved]
  - Feeling abnormal [Not Recovered/Not Resolved]
  - Gastroenteritis viral [Recovering/Resolving]
  - Multiple sclerosis relapse [Not Recovered/Not Resolved]
  - Asthenia [Not Recovered/Not Resolved]
